FAERS Safety Report 8550461-1 (Version None)
Quarter: 2012Q3

REPORT INFORMATION
  Report Type: 
  Country: None (occurrence: None)
  Receive Date: 20120730
  Receipt Date: 20120716
  Transmission Date: 20120928
  Serious: Yes (Hospitalization)
  Sender: FDA-Public Use
  Company Number: ZA-ELI_LILLY_AND_COMPANY-ZA201207006616

PATIENT
  Sex: Male

DRUGS (4)
  1. PROTOS [Concomitant]
     Indication: OSTEOPOROSIS
     Dosage: 2 G, QD
     Route: 048
  2. MOLIPAXIN [Concomitant]
     Indication: DEPRESSION
     Dosage: UNK
  3. AZOR [Concomitant]
     Indication: ANXIETY
     Dosage: UNK
     Route: 048
  4. CYMBALTA [Suspect]
     Indication: DEPRESSION
     Dosage: 60 MG, QD
     Route: 048
     Dates: start: 20100331

REACTIONS (1)
  - KNEE ARTHROPLASTY [None]
